FAERS Safety Report 9187293 (Version 3)
Quarter: 2015Q2

REPORT INFORMATION
  Report Type: Report from Study
  Country: NZ (occurrence: NZ)
  Receive Date: 20130325
  Receipt Date: 20150611
  Transmission Date: 20150821
  Serious: Yes (Other)
  Sender: FDA-Public Use
  Company Number: PHHY2013NZ027977

PATIENT
  Sex: Male

DRUGS (3)
  1. TASIGNA [Suspect]
     Active Substance: NILOTINIB
     Indication: HYPEREOSINOPHILIC SYNDROME
     Dosage: 400 MG, DAILY
     Route: 048
     Dates: start: 200901, end: 2014
  2. TASIGNA [Suspect]
     Active Substance: NILOTINIB
     Indication: EOSINOPHILIC LEUKAEMIA
  3. TASIGNA [Suspect]
     Active Substance: NILOTINIB
     Indication: EOSINOPHILIC COLITIS

REACTIONS (6)
  - Off label use [Unknown]
  - Eosinophilic colitis [Unknown]
  - Disease recurrence [Unknown]
  - Malignant neoplasm progression [Unknown]
  - Cardiac disorder [Unknown]
  - Hypereosinophilic syndrome [Unknown]
